FAERS Safety Report 4345003-0 (Version None)
Quarter: 2004Q2

REPORT INFORMATION
  Report Type: 
  Country: None (occurrence: None)
  Receive Date: 20040421
  Receipt Date: 20040421
  Transmission Date: 20050107
  Serious: Yes (Death)
  Sender: FDA-Public Use
  Company Number: None

PATIENT
  Age: 64 Year
  Sex: Male
  Weight: 72.5755 kg

DRUGS (2)
  1. EFFEXOR XR [Suspect]
     Indication: BIPOLAR DISORDER
     Dosage: 75 MG ONCE DAILY
     Dates: start: 20040115, end: 20040305
  2. EFFEXOR XR [Suspect]
     Indication: DEPRESSION
     Dosage: 75 MG ONCE DAILY
     Dates: start: 20040115, end: 20040305

REACTIONS (1)
  - COMPLETED SUICIDE [None]
